FAERS Safety Report 4416324-8 (Version None)
Quarter: 2004Q3

REPORT INFORMATION
  Report Type: 
  Country: None (occurrence: None)
  Receive Date: 20040804
  Receipt Date: 20040804
  Transmission Date: 20050211
  Serious: Yes (Hospitalization)
  Sender: FDA-Public Use
  Company Number: None

PATIENT
  Age: 81 Year
  Sex: Male
  Weight: 90 kg

DRUGS (2)
  1. GABAPENTIN [Suspect]
     Dosage: 300 MG PO TID
     Route: 048
     Dates: start: 20030701, end: 20030801
  2. SERTRALINE HCL [Suspect]
     Indication: DEPRESSION
     Dosage: 100 MG PO Q DAILY
     Route: 048
     Dates: start: 20030701, end: 20030801

REACTIONS (2)
  - SEROTONIN SYNDROME [None]
  - URINARY TRACT INFECTION [None]
